FAERS Safety Report 8720132 (Version 2)
Quarter: 2015Q2

REPORT INFORMATION
  Report Type: Spontaneous
  Country: JP (occurrence: JP)
  Receive Date: 20120813
  Receipt Date: 20150522
  Transmission Date: 20150821
  Serious: No
  Sender: FDA-Public Use
  Company Number: JP-UCBSA-063302

PATIENT
  Age: 74 Year
  Sex: Female

DRUGS (10)
  1. DIOVAN [Concomitant]
     Active Substance: VALSARTAN
     Dosage: DAILY DOSE: 160 MG
     Route: 048
  2. TAKEPRON [Concomitant]
     Active Substance: LANSOPRAZOLE
     Dosage: DAILY DOSE:15 MG
  3. DEPAKENE [Concomitant]
     Active Substance: VALPROIC ACID
     Dosage: DAILY DOSE:600 MG
     Route: 048
  4. AMLODIN OD [Concomitant]
     Active Substance: AMLODIPINE BESYLATE
     Dosage: DAILY DOSE: 5 MG
     Route: 048
  5. WARFARIN [Concomitant]
     Active Substance: WARFARIN
     Dosage: DAILY DOSE: 2.5 MG
     Route: 048
  6. BAYASPIRIN [Concomitant]
     Active Substance: ASPIRIN
     Dosage: DAILY DOSE: 100 MG
     Route: 048
  7. KEPPRA [Suspect]
     Active Substance: LEVETIRACETAM
     Indication: EPILEPSY
     Dosage: 250 MG, 2X/DAY (BID)
     Route: 048
     Dates: start: 20120602, end: 20120627
  8. THYRADIN  S [Concomitant]
     Active Substance: LEVOTHYROXINE SODIUM
     Dosage: DAILY DOSE: 75 MCG
     Route: 048
  9. LANDSEN [Concomitant]
     Active Substance: CLONAZEPAM
     Dosage: DAILY DOSE: 0.5MG
     Route: 048
  10. LIPITOR [Concomitant]
     Active Substance: ATORVASTATIN CALCIUM
     Dosage: DAILY DOSE: 10 MG
     Route: 048

REACTIONS (1)
  - Platelet count decreased [Recovered/Resolved]

NARRATIVE: CASE EVENT DATE: 20120625
